FAERS Safety Report 16753968 (Version 1)
Quarter: 2019Q3

REPORT INFORMATION
  Report Type: Spontaneous
  Country: CN (occurrence: CN)
  Receive Date: 20190829
  Receipt Date: 20190829
  Transmission Date: 20191005
  Serious: Yes (Other)
  Sender: FDA-Public Use
  Company Number: CN-PFIZER INC-2019363643

PATIENT
  Age: 18 Month
  Sex: Male
  Weight: 10 kg

DRUGS (1)
  1. SOLU-MEDROL [Suspect]
     Active Substance: METHYLPREDNISOLONE SODIUM SUCCINATE
     Indication: WHEEZING
     Dosage: 10 MG, 3X/DAY
     Route: 041
     Dates: start: 20190820, end: 20190821

REACTIONS (4)
  - Insomnia [Recovering/Resolving]
  - Abnormal behaviour [Recovering/Resolving]
  - Mania [Recovering/Resolving]
  - Dysphoria [Recovering/Resolving]

NARRATIVE: CASE EVENT DATE: 20190820
